FAERS Safety Report 9157724 (Version 4)
Quarter: 2013Q1

REPORT INFORMATION
  Report Type: Spontaneous
  Country: GB (occurrence: None)
  Receive Date: 20130212
  Receipt Date: 20130329
  Transmission Date: 20140127
  Serious: Yes (Hospitalization, Other)
  Sender: FDA-Public Use
  Company Number: AUR-APL-2013-01278

PATIENT
  Age: 67 Year
  Sex: Female

DRUGS (6)
  1. METFORMIN [Suspect]
     Indication: PRODUCT USED FOR UNKNOWN INDICATION
     Dosage: 1000 MG (500 MG, 2 IN 1 D), UNKNOWN
  2. LEVEMIR (INSULIN DETEMIR) [Suspect]
     Indication: TYPE 1 DIABETES MELLITUS
     Dosage: 5 UNITS IN THE MORNING AND 22, UNKNOWN
     Dates: start: 200510
  3. NOVORAPID [Suspect]
     Indication: TYPE 1 DIABETES MELLITUS
     Dosage: DOSE DEPENDING ON DIET, UNKNOWN
     Dates: start: 200503
  4. INDAPAMIDE (INDAPAMIDE) [Concomitant]
  5. LETROZOLE (LETROZOLE) [Concomitant]
  6. SIMVASTATIN (SIMVASTATIN) [Concomitant]

REACTIONS (7)
  - Loss of consciousness [None]
  - Ketoacidosis [None]
  - Vomiting [None]
  - Stress [None]
  - Balance disorder [None]
  - Hypoglycaemia [None]
  - Device issue [None]
